FAERS Safety Report 7609352-2 (Version None)
Quarter: 2011Q3

REPORT INFORMATION
  Report Type: 
  Country: None (occurrence: None)
  Receive Date: 20110714
  Receipt Date: 20110706
  Transmission Date: 20111222
  Serious: Yes (Other)
  Sender: FDA-Public Use
  Company Number: PHHY2011BR43568

PATIENT
  Age: 45 Year
  Sex: Female

DRUGS (2)
  1. VOLTAREN [Suspect]
     Indication: POSTOPERATIVE CARE
     Dosage: 1 DF, NO TREATMENT
     Dates: start: 20110512
  2. LEVOTHYROXINE SODIUM [Suspect]

REACTIONS (3)
  - DIZZINESS [None]
  - SYNCOPE [None]
  - MEDICATION ERROR [None]
